FAERS Safety Report 20149621 (Version 2)
Quarter: 2022Q1

REPORT INFORMATION
  Report Type: Spontaneous
  Country: PT (occurrence: PT)
  Receive Date: 20211206
  Receipt Date: 20220117
  Transmission Date: 20220424
  Serious: Yes (Death, Life-Threatening, Hospitalization, Other)
  Sender: FDA-Public Use
  Company Number: None

PATIENT
  Age: 65 Year
  Sex: Male

DRUGS (7)
  1. PREDNISOLONE [Suspect]
     Active Substance: PREDNISOLONE
     Indication: Renal transplant
     Dosage: UNK
     Route: 065
  2. PREDNISOLONE [Suspect]
     Active Substance: PREDNISOLONE
     Dosage: UNK, MAINTAINED
     Route: 065
  3. TACROLIMUS [Suspect]
     Active Substance: TACROLIMUS
     Indication: Renal transplant
     Dosage: UNK
     Route: 065
  4. TACROLIMUS [Suspect]
     Active Substance: TACROLIMUS
     Dosage: UNK DOSE REDUCE, MAINTAINED
     Route: 065
  5. METHYLPREDNISOLONE [Suspect]
     Active Substance: METHYLPREDNISOLONE
     Indication: Renal transplant
     Dosage: UNK
     Route: 065
  6. THYMOGLOBULIN [Suspect]
     Active Substance: LAPINE T-LYMPHOCYTE IMMUNE GLOBULIN
     Indication: Renal transplant
     Dosage: 2.9 MILLIGRAM/KILOGRAM UNK
     Route: 065
  7. THYMOGLOBULIN [Suspect]
     Active Substance: LAPINE T-LYMPHOCYTE IMMUNE GLOBULIN
     Dosage: 150 MILLIGRAM, UNK
     Route: 065

REACTIONS (13)
  - Hyperlactacidaemia [Fatal]
  - Perinephric abscess [Fatal]
  - Fournier^s gangrene [Fatal]
  - Septic shock [Fatal]
  - Enterococcal infection [Fatal]
  - Candida infection [Fatal]
  - Proteus infection [Fatal]
  - Klebsiella infection [Fatal]
  - Escherichia infection [Fatal]
  - Morganella infection [Fatal]
  - Anaemia [Fatal]
  - Hypotension [Fatal]
  - Multiple organ dysfunction syndrome [Recovered/Resolved]
